FAERS Safety Report 23528129 (Version 1)
Quarter: 2024Q1

REPORT INFORMATION
  Report Type: Spontaneous
  Country: CN (occurrence: CN)
  Receive Date: 20240215
  Receipt Date: 20240215
  Transmission Date: 20240410
  Serious: Yes (Other)
  Sender: FDA-Public Use
  Company Number: CN-ELI_LILLY_AND_COMPANY-CN202402003080

PATIENT
  Age: 30 Year
  Sex: Female
  Weight: 52 kg

DRUGS (20)
  1. RAMUCIRUMAB [Suspect]
     Active Substance: RAMUCIRUMAB
     Indication: Gastric cancer
     Dosage: 416 MG, SINGLE (AT ONCE A DAY)
     Route: 041
     Dates: start: 20240119
  2. RAMUCIRUMAB [Suspect]
     Active Substance: RAMUCIRUMAB
     Indication: Hepatic function abnormal
  3. RAMUCIRUMAB [Suspect]
     Active Substance: RAMUCIRUMAB
     Indication: Cholecystitis chronic
  4. RAMUCIRUMAB [Suspect]
     Active Substance: RAMUCIRUMAB
     Indication: Thyroid mass
  5. RAMUCIRUMAB [Suspect]
     Active Substance: RAMUCIRUMAB
     Indication: Palliative care
  6. PACLITAXEL [Suspect]
     Active Substance: PACLITAXEL
     Indication: Gastric cancer
     Dosage: 128 MG, SINGLE (AT ONCE A DAY)
     Route: 041
     Dates: start: 20240119, end: 20240119
  7. PACLITAXEL [Suspect]
     Active Substance: PACLITAXEL
     Indication: Hepatic function abnormal
  8. PACLITAXEL [Suspect]
     Active Substance: PACLITAXEL
     Indication: Cholecystitis chronic
  9. PACLITAXEL [Suspect]
     Active Substance: PACLITAXEL
     Indication: Thyroid mass
  10. PACLITAXEL [Suspect]
     Active Substance: PACLITAXEL
     Indication: Palliative care
  11. CADONILIMAB [Suspect]
     Active Substance: CADONILIMAB
     Indication: Gastric cancer
     Dosage: 336 MG, SINGLE (AT ONCE A DAY)
     Route: 041
     Dates: start: 20240119, end: 20240119
  12. CADONILIMAB [Suspect]
     Active Substance: CADONILIMAB
     Indication: Hepatic function abnormal
  13. CADONILIMAB [Suspect]
     Active Substance: CADONILIMAB
     Indication: Cholecystitis chronic
  14. CADONILIMAB [Suspect]
     Active Substance: CADONILIMAB
     Indication: Thyroid mass
  15. CADONILIMAB [Suspect]
     Active Substance: CADONILIMAB
     Indication: Palliative care
  16. SODIUM CHLORIDE [Concomitant]
     Active Substance: SODIUM CHLORIDE
     Indication: Gastric cancer
     Dosage: 100 ML, SINGLE (AT ONCE A DAY)
     Route: 041
     Dates: start: 20240119, end: 20240119
  17. SODIUM CHLORIDE [Concomitant]
     Active Substance: SODIUM CHLORIDE
     Indication: Hepatic function abnormal
     Dosage: 100 ML, SINGLE (AT ONCE A DAY)
     Route: 041
     Dates: start: 20240119, end: 20240119
  18. SODIUM CHLORIDE [Concomitant]
     Active Substance: SODIUM CHLORIDE
     Indication: Palliative care
  19. SODIUM CHLORIDE [Concomitant]
     Active Substance: SODIUM CHLORIDE
     Indication: Cholecystitis chronic
  20. SODIUM CHLORIDE [Concomitant]
     Active Substance: SODIUM CHLORIDE
     Indication: Thyroid mass

REACTIONS (2)
  - Alanine aminotransferase increased [Recovering/Resolving]
  - Aspartate aminotransferase increased [Recovering/Resolving]

NARRATIVE: CASE EVENT DATE: 20240125
